FAERS Safety Report 23578963 (Version 2)
Quarter: 2024Q1

REPORT INFORMATION
  Report Type: Report from Study
  Country: US (occurrence: US)
  Receive Date: 20240229
  Receipt Date: 20240305
  Transmission Date: 20240410
  Serious: Yes (Hospitalization)
  Sender: FDA-Public Use
  Company Number: US-002147023-NVSC2024US042323

PATIENT
  Sex: Male

DRUGS (1)
  1. ENTRESTO [Suspect]
     Active Substance: SACUBITRIL\VALSARTAN
     Indication: Product used for unknown indication
     Dosage: UNK UNK, BID (24/26 MG)
     Route: 065

REACTIONS (4)
  - Gout [Recovering/Resolving]
  - Gait disturbance [Unknown]
  - Pain [Unknown]
  - Wrong technique in product usage process [Unknown]
